FAERS Safety Report 21989422 (Version 1)
Quarter: 2023Q1

REPORT INFORMATION
  Report Type: Spontaneous
  Country: US (occurrence: US)
  Receive Date: 20230214
  Receipt Date: 20230214
  Transmission Date: 20230417
  Serious: Yes (Other)
  Sender: FDA-Public Use
  Company Number: US-PFM-2023-00789

PATIENT
  Sex: Female
  Weight: 7.27 kg

DRUGS (1)
  1. HEMANGEOL [Suspect]
     Active Substance: PROPRANOLOL HYDROCHLORIDE
     Indication: Haemangioma
     Dosage: 2.8 ML, BID (2/DAY)
     Route: 048

REACTIONS (3)
  - Haemorrhage [Unknown]
  - Skin discolouration [Unknown]
  - Injury [Unknown]
